FAERS Safety Report 8906552 (Version 1)
Quarter: 2012Q4

REPORT INFORMATION
  Report Type: 
  Country: US (occurrence: US)
  Receive Date: 20121113
  Receipt Date: 20121113
  Transmission Date: 20130627
  Serious: No
  Sender: FDA-Public Use
  Company Number: US-AMGEN-USASP2012011077

PATIENT
  Age: 66 Year
  Sex: Female
  Weight: 73.92 kg

DRUGS (3)
  1. ENBREL [Suspect]
     Indication: PRODUCT USED FOR UNKNOWN INDICATION
     Dosage: 50 mg, qwk
  2. BENADRYL ALLERGY                   /00000402/ [Concomitant]
  3. ALEVE D [Concomitant]

REACTIONS (1)
  - Drug ineffective [Unknown]
